FAERS Safety Report 24936163 (Version 1)
Quarter: 2025Q1

REPORT INFORMATION
  Report Type: Report from Study
  Country: MY (occurrence: MY)
  Receive Date: 20250206
  Receipt Date: 20250206
  Transmission Date: 20250409
  Serious: Yes (Death, Other)
  Sender: ALEXION PHARMACEUTICALS
  Company Number: MY-AstraZeneca-CH-00798446A

PATIENT
  Age: 84 Year

DRUGS (1)
  1. GEFITINIB [Suspect]
     Active Substance: GEFITINIB
     Indication: Non-small cell lung cancer metastatic
     Dosage: 250 MILLIGRAM, QD

REACTIONS (1)
  - Death [Fatal]
